FAERS Safety Report 25986059 (Version 1)
Quarter: 2025Q4

REPORT INFORMATION
  Report Type: Spontaneous
  Country: EU (occurrence: EU)
  Receive Date: 20251031
  Receipt Date: 20251031
  Transmission Date: 20260118
  Serious: Yes (Other)
  Sender: PFIZER
  Company Number: None

PATIENT
  Age: 48 Year
  Sex: Female
  Weight: 88 kg

DRUGS (2)
  1. BRAFTOVI [Suspect]
     Active Substance: ENCORAFENIB
     Indication: Metastatic malignant melanoma
     Dosage: 450 MG, QD (1/DAY)
     Route: 048
     Dates: start: 20250129, end: 20250707
  2. MEKTOVI [Suspect]
     Active Substance: BINIMETINIB
     Indication: Metastatic malignant melanoma
     Dosage: 45 MG, QD (1/DAY)
     Route: 048
     Dates: start: 20250129, end: 20250707

REACTIONS (1)
  - Terminal ileitis [Recovering/Resolving]

NARRATIVE: CASE EVENT DATE: 20250324
